FAERS Safety Report 12143641 (Version 1)
Quarter: 2016Q1

REPORT INFORMATION
  Report Type: Spontaneous
  Country: US (occurrence: US)
  Receive Date: 20160304
  Receipt Date: 20160304
  Transmission Date: 20160526
  Serious: No
  Sender: FDA-Public Use
  Company Number: US-JNJFOC-20160114243

PATIENT
  Age: 62 Year
  Sex: Female

DRUGS (6)
  1. ZYRTEC 10MG IR TABLET [Suspect]
     Active Substance: CETIRIZINE HYDROCHLORIDE
     Indication: VERTIGO
     Dosage: 5MG, EVERY OTHER DAY
     Route: 048
  2. ZYRTEC 10MG IR TABLET [Suspect]
     Active Substance: CETIRIZINE HYDROCHLORIDE
     Indication: VERTIGO
     Dosage: HALF TABLET, DAILY FOR A FEW WEEKS
     Route: 048
  3. ZYRTEC 10MG IR TABLET [Suspect]
     Active Substance: CETIRIZINE HYDROCHLORIDE
     Indication: INNER EAR DISORDER
     Dosage: 1 TABLET, DAILY FOR 3 WEEKS
     Route: 048
     Dates: start: 20151202
  4. ZYRTEC 10MG IR TABLET [Suspect]
     Active Substance: CETIRIZINE HYDROCHLORIDE
     Indication: INNER EAR DISORDER
     Dosage: 5MG, EVERY OTHER DAY
     Route: 048
  5. ZYRTEC 10MG IR TABLET [Suspect]
     Active Substance: CETIRIZINE HYDROCHLORIDE
     Indication: INNER EAR DISORDER
     Dosage: HALF TABLET, DAILY FOR A FEW WEEKS
     Route: 048
  6. ZYRTEC 10MG IR TABLET [Suspect]
     Active Substance: CETIRIZINE HYDROCHLORIDE
     Indication: VERTIGO
     Dosage: 1 TABLET, DAILY FOR 3 WEEKS
     Route: 048
     Dates: start: 20151202

REACTIONS (3)
  - Off label use [Recovered/Resolved]
  - Product use issue [Recovered/Resolved]
  - Somnolence [Recovered/Resolved]

NARRATIVE: CASE EVENT DATE: 20151202
